FAERS Safety Report 4458829-X (Version None)
Quarter: 2004Q3

REPORT INFORMATION
  Report Type: 
  Country: None (occurrence: None)
  Receive Date: 20040922
  Receipt Date: 20040922
  Transmission Date: 20050211
  Serious: No
  Sender: FDA-Public Use
  Company Number: None

PATIENT
  Age: 48 Year
  Sex: Female

DRUGS (2)
  1. OXALIPLATIN [Suspect]
     Indication: COLON CANCER METASTATIC
     Dosage: 146MG  IV
     Route: 042
     Dates: start: 20040825
  2. LEUCOVORIN CALCIUM [Concomitant]

REACTIONS (8)
  - CHEST DISCOMFORT [None]
  - ERYTHEMA [None]
  - EXTRAVASATION [None]
  - IMPLANT SITE REACTION [None]
  - INFECTION [None]
  - MECHANICAL COMPLICATION OF IMPLANT [None]
  - PAIN [None]
  - PROCEDURAL SITE REACTION [None]
